FAERS Safety Report 7002769-9 (Version None)
Quarter: 2010Q3

REPORT INFORMATION
  Report Type: 
  Country: None (occurrence: None)
  Receive Date: 20100902
  Receipt Date: 20100607
  Transmission Date: 20110219
  Serious: Yes (Hospitalization, Disabling, Other)
  Sender: FDA-Public Use
  Company Number: 236987USA

PATIENT

DRUGS (1)
  1. METOCLOPRAMIDE [Suspect]
     Dates: start: 20000701

REACTIONS (1)
  - MUSCLE TWITCHING [None]
